FAERS Safety Report 7617477-0 (Version None)
Quarter: 2011Q3

REPORT INFORMATION
  Report Type: 
  Country: None (occurrence: None)
  Receive Date: 20110718
  Receipt Date: 20110714
  Transmission Date: 20111222
  Serious: No
  Sender: FDA-Public Use
  Company Number: US-PFIZER INC-2011154610

PATIENT
  Sex: Female
  Weight: 74.83 kg

DRUGS (5)
  1. VITAMIN B [Concomitant]
     Dosage: UNK
  2. BETASERON [Concomitant]
     Indication: MULTIPLE SCLEROSIS
     Dosage: UNK, 1X/DAY
  3. VITAMIN B-12 [Concomitant]
     Dosage: UNK
  4. MULTI-VITAMINS [Concomitant]
     Dosage: UNK
  5. TOVIAZ [Suspect]
     Indication: HYPERTONIC BLADDER
     Dosage: 4 MG, DAILY
     Route: 048
     Dates: start: 20090101

REACTIONS (2)
  - DRY MOUTH [None]
  - NOCTURIA [None]
